FAERS Safety Report 25883827 (Version 2)
Quarter: 2025Q4

REPORT INFORMATION
  Report Type: Report from Study
  Country: CA (occurrence: None)
  Receive Date: 20251006
  Receipt Date: 20251205
  Transmission Date: 20260118
  Serious: Yes (Other)
  Sender: UCB
  Company Number: CA-UCBSA-2025061977

PATIENT

DRUGS (2)
  1. CERTOLIZUMAB PEGOL [Suspect]
     Active Substance: CERTOLIZUMAB PEGOL
     Indication: Ankylosing spondylitis
     Dosage: 400 MILLIGRAM, EV 2 WEEKS(QOW)
  2. CERTOLIZUMAB PEGOL [Suspect]
     Active Substance: CERTOLIZUMAB PEGOL
     Dosage: 400 MILLIGRAM, EV 2 WEEKS(QOW)

REACTIONS (6)
  - Breast cancer [Not Recovered/Not Resolved]
  - Transplant rejection [Not Recovered/Not Resolved]
  - Mastectomy [Not Recovered/Not Resolved]
  - Breast reconstruction [Not Recovered/Not Resolved]
  - Post procedural infection [Recovered/Resolved]
  - Feeling abnormal [Not Recovered/Not Resolved]
